FAERS Safety Report 7736882-5 (Version None)
Quarter: 2011Q3

REPORT INFORMATION
  Report Type: 
  Country: None (occurrence: None)
  Receive Date: 20110908
  Receipt Date: 20110905
  Transmission Date: 20111222
  Serious: Yes (Other)
  Sender: FDA-Public Use
  Company Number: AU-PFIZER INC-2011206436

PATIENT
  Sex: Male

DRUGS (2)
  1. NEURONTIN [Suspect]
     Dosage: UNK
  2. LYRICA [Suspect]
     Dosage: UNK

REACTIONS (5)
  - SUICIDAL IDEATION [None]
  - ALOPECIA [None]
  - VIITH NERVE PARALYSIS [None]
  - WITHDRAWAL SYNDROME [None]
  - DRUG DEPENDENCE [None]
